FAERS Safety Report 8492858-4 (Version None)
Quarter: 2012Q3

REPORT INFORMATION
  Report Type: 
  Country: None (occurrence: None)
  Receive Date: 20120706
  Receipt Date: 20120628
  Transmission Date: 20120928
  Serious: Yes (Life-Threatening)
  Sender: FDA-Public Use
  Company Number: GB-JNJFOC-20120700015

PATIENT
  Age: 55 Year
  Sex: Male
  Weight: 86 kg

DRUGS (5)
  1. DICLOFENAC SODIUM [Suspect]
     Indication: PREMEDICATION
     Route: 048
     Dates: start: 20120613, end: 20120613
  2. METOCLOPRAMIDE HYDROCHLORIDE [Suspect]
     Indication: PREMEDICATION
     Route: 048
     Dates: start: 20120613, end: 20120613
  3. SIMVASTATIN [Concomitant]
     Route: 048
  4. ACETAMINOPHEN [Suspect]
     Route: 048
  5. ACETAMINOPHEN [Suspect]
     Indication: PREMEDICATION
     Route: 048
     Dates: start: 20120613, end: 20120613

REACTIONS (1)
  - ANAPHYLACTIC REACTION [None]
